FAERS Safety Report 5825943-3 (Version None)
Quarter: 2008Q3

REPORT INFORMATION
  Report Type: 
  Country: None (occurrence: None)
  Receive Date: 20080723
  Receipt Date: 20080708
  Transmission Date: 20090109
  Serious: Yes (Death)
  Sender: FDA-Public Use
  Company Number: 2008S1012083

PATIENT
  Age: 70 Year
  Sex: Male

DRUGS (4)
  1. WARFARIN SODIUM [Suspect]
     Indication: DEEP VEIN THROMBOSIS
     Dosage: ORAL
     Route: 048
     Dates: start: 20080529, end: 20080611
  2. BENDROFLUAZIDE (BENDROFLUMETHIAZIDE) [Concomitant]
  3. DILTIAZEM [Concomitant]
  4. IRBESARTAN [Concomitant]

REACTIONS (6)
  - BASAL GANGLIA HAEMORRHAGE [None]
  - HEMIPARESIS [None]
  - HYDROCEPHALUS [None]
  - PHARYNGEAL HAEMATOMA [None]
  - SYNCOPE [None]
  - SYSTOLIC HYPERTENSION [None]
